FAERS Safety Report 8921168 (Version 1)
Quarter: 2012Q4

REPORT INFORMATION
  Report Type: 
  Country: CA (occurrence: CA)
  Receive Date: 20121122
  Receipt Date: 20121122
  Transmission Date: 20130627
  Serious: Yes (Hospitalization)
  Sender: FDA-Public Use
  Company Number: CA-AMGEN-CANSP2012069824

PATIENT
  Age: 69 Year
  Sex: Female

DRUGS (4)
  1. ENBREL [Suspect]
     Indication: RHEUMATOID ARTHRITIS
     Dosage: UNK
     Dates: start: 20030430, end: 200912
  2. PLAQUENIL                          /00072602/ [Concomitant]
     Dosage: UNK
  3. NEXIUM                             /01479302/ [Concomitant]
     Dosage: UNK
  4. ACLASTA [Concomitant]
     Dosage: UNK

REACTIONS (2)
  - Haemoptysis [Recovered/Resolved]
  - Mycobacterium avium complex infection [Recovered/Resolved]
